FAERS Safety Report 8437709-9 (Version None)
Quarter: 2012Q2

REPORT INFORMATION
  Report Type: 
  Country: None (occurrence: None)
  Receive Date: 20120614
  Receipt Date: 20120502
  Transmission Date: 20120825
  Serious: No
  Sender: FDA-Public Use
  Company Number: US-AMGEN-USASP2012027889

PATIENT
  Age: 54 Year
  Sex: Female

DRUGS (5)
  1. ESTROGEN [Concomitant]
  2. ANTIHYPERTENSIVES [Concomitant]
     Dosage: UNK
  3. LIPID MODIFYING AGENTS [Concomitant]
  4. VITAMINS                           /00067501/ [Concomitant]
  5. PROLIA [Suspect]
     Indication: OSTEOPOROSIS
     Dosage: 60 MG, UNK
     Dates: start: 20110201

REACTIONS (7)
  - INFLUENZA [None]
  - HEADACHE [None]
  - EAR PAIN [None]
  - PNEUMONIA [None]
  - ECZEMA [None]
  - NASOPHARYNGITIS [None]
  - IMMUNE SYSTEM DISORDER [None]
